FAERS Safety Report 5583931-9 (Version None)
Quarter: 2008Q1

REPORT INFORMATION
  Report Type: 
  Country: None (occurrence: None)
  Receive Date: 20080108
  Receipt Date: 20071227
  Transmission Date: 20080703
  Serious: Yes (Death, Life-Threatening, Other)
  Sender: FDA-Public Use
  Company Number: JP-WYE-H01805207

PATIENT
  Age: 80 Year
  Sex: Male

DRUGS (6)
  1. HYPEN [Suspect]
     Indication: LUMBAR SPINAL STENOSIS
     Dosage: UNSPECIFIED
     Route: 048
     Dates: start: 20071122, end: 20071210
  2. SIMVASTATIN [Concomitant]
     Dosage: UNSPECIFIED
     Route: 048
  3. ENALAPRIL [Concomitant]
     Dosage: UNSPECIFIED
     Route: 048
  4. BENIDIPINE [Concomitant]
     Dosage: UNSPECIFIED
     Route: 048
  5. OMEPRAZOLE [Suspect]
     Indication: LUMBAR SPINAL STENOSIS
     Route: 048
     Dates: start: 20071120, end: 20071210
  6. REBAMIPIDE [Concomitant]
     Dosage: UNSPECIFIED
     Route: 048
     Dates: start: 20071115, end: 20071210

REACTIONS (4)
  - HAEMATEMESIS [None]
  - PNEUMONIA [None]
  - SEPSIS [None]
  - STEVENS-JOHNSON SYNDROME [None]
